FAERS Safety Report 23518226 (Version 2)
Quarter: 2024Q1

REPORT INFORMATION
  Report Type: Spontaneous
  Country: MX (occurrence: MX)
  Receive Date: 20240213
  Receipt Date: 20240307
  Transmission Date: 20240409
  Serious: Yes (Hospitalization, Other)
  Sender: FDA-Public Use
  Company Number: MX-WOODWARD-2024-MX-000006

PATIENT
  Age: 69 Year
  Sex: Male

DRUGS (1)
  1. DUTASTERIDE\TAMSULOSIN HYDROCHLORIDE [Suspect]
     Active Substance: DUTASTERIDE\TAMSULOSIN HYDROCHLORIDE
     Indication: Product used for unknown indication
     Dosage: UNKNOWN
     Route: 065
     Dates: start: 20230922, end: 20231008

REACTIONS (6)
  - Surgery [Unknown]
  - Syncope [Unknown]
  - Hypotension [Unknown]
  - Dysstasia [Unknown]
  - Dizziness [Unknown]
  - Orthostatic hypotension [Unknown]
